FAERS Safety Report 25589509 (Version 1)
Quarter: 2025Q3

REPORT INFORMATION
  Report Type: Spontaneous
  Country: US (occurrence: US)
  Receive Date: 20250722
  Receipt Date: 20250722
  Transmission Date: 20251021
  Serious: Yes (Hospitalization, Other)
  Sender: SANOFI AVENTIS
  Company Number: US-SA-2025SA208821

PATIENT
  Sex: Female

DRUGS (29)
  1. DUPIXENT [Suspect]
     Active Substance: DUPILUMAB
     Indication: Chronic obstructive pulmonary disease
     Dosage: 300 MG, QOW
     Route: 058
  2. ESCITALOPRAM [Concomitant]
     Active Substance: ESCITALOPRAM OXALATE
  3. TYLENOL [Concomitant]
     Active Substance: ACETAMINOPHEN
  4. ACETAMINOPHEN [Concomitant]
     Active Substance: ACETAMINOPHEN
  5. AIRSUPRA [BUDESONIDE;SALBUTAMOL] [Concomitant]
  6. ASPIRIN [Concomitant]
     Active Substance: ASPIRIN
  7. ATORVASTATIN [Concomitant]
     Active Substance: ATORVASTATIN
  8. BUSPIRONE HCL [Concomitant]
     Active Substance: BUSPIRONE HYDROCHLORIDE
  9. CARVEDILOL [Concomitant]
     Active Substance: CARVEDILOL
  10. FLUTICASONE [Concomitant]
     Active Substance: FLUTICASONE
  11. FUROSEMIDE [Concomitant]
     Active Substance: FUROSEMIDE
  12. GABAPENTIN [Concomitant]
     Active Substance: GABAPENTIN
  13. GLIPIZIDE [Concomitant]
     Active Substance: GLIPIZIDE
  14. HUMALOG KWIKPEN [Concomitant]
     Active Substance: INSULIN LISPRO
  15. HYDROCODONE [Concomitant]
     Active Substance: HYDROCODONE
  16. INCRUSE ELLIPTA [Concomitant]
     Active Substance: UMECLIDINIUM BROMIDE
  17. IPRATROPIUM [Concomitant]
     Active Substance: IPRATROPIUM
  18. LATANOPROST [Concomitant]
     Active Substance: LATANOPROST
  19. LIDOCAINE [Concomitant]
     Active Substance: LIDOCAINE
  20. MONTELUKAST [Concomitant]
     Active Substance: MONTELUKAST
  21. MOVANTIK [Concomitant]
     Active Substance: NALOXEGOL OXALATE
  22. PANTOPRAZOLE [Concomitant]
     Active Substance: PANTOPRAZOLE
  23. PREDNISONE [Concomitant]
     Active Substance: PREDNISONE
  24. ROPINIROLE [Concomitant]
     Active Substance: ROPINIROLE
  25. SPIRONOLACTONE [Concomitant]
     Active Substance: SPIRONOLACTONE
  26. TOBRAMYCIN [Concomitant]
     Active Substance: TOBRAMYCIN
  27. TOUJEO MAX [Concomitant]
     Active Substance: INSULIN GLARGINE
  28. VITAMIN C [Concomitant]
     Active Substance: ASCORBIC ACID
  29. VITAMIN D NOS [Concomitant]
     Active Substance: CHOLECALCIFEROL\ERGOCALCIFEROL

REACTIONS (2)
  - Gastric haemorrhage [Unknown]
  - Full blood count abnormal [Unknown]
